FAERS Safety Report 4556621-9 (Version None)
Quarter: 2005Q1

REPORT INFORMATION
  Report Type: 
  Country: None (occurrence: None)
  Receive Date: 20050118
  Receipt Date: 20050105
  Transmission Date: 20050727
  Serious: Yes (Other)
  Sender: FDA-Public Use
  Company Number: 2005006133

PATIENT
  Age: 76 Year
  Sex: Female
  Weight: 68.0396 kg

DRUGS (7)
  1. NEURONTIN [Suspect]
     Indication: BACK PAIN
     Dosage: ORAL
     Route: 048
     Dates: start: 20040401
  2. METFORMIN HCL [Concomitant]
  3. FUROSEMIDE [Concomitant]
  4. CLOPIDOGREL BISULFATE [Concomitant]
  5. METOPROLOL TARTRATE [Concomitant]
  6. DESLORATADINE (DESLORATADINE) [Concomitant]
  7. AMITRIPTYLINE HCL [Concomitant]

REACTIONS (16)
  - ABASIA [None]
  - DEPRESSION [None]
  - DYSSTASIA [None]
  - EYE DISORDER [None]
  - FALL [None]
  - GLAUCOMA SURGERY [None]
  - HYPOTRICHOSIS [None]
  - LETHARGY [None]
  - MUSCLE SPASMS [None]
  - PARAPLEGIA [None]
  - SKIN DISCOLOURATION [None]
  - SKIN EXFOLIATION [None]
  - SKIN NODULE [None]
  - SPINAL CORD COMPRESSION [None]
  - VIRAL INFECTION [None]
  - VISION BLURRED [None]
